FAERS Safety Report 6784649-7 (Version None)
Quarter: 2010Q2

REPORT INFORMATION
  Report Type: 
  Country: None (occurrence: None)
  Receive Date: 20100622
  Receipt Date: 20100615
  Transmission Date: 20101027
  Serious: Yes (Hospitalization)
  Sender: FDA-Public Use
  Company Number: B0660643A

PATIENT
  Sex: Male

DRUGS (10)
  1. RANITIDINE HCL [Suspect]
     Dosage: 150MG TWICE PER DAY
     Route: 048
     Dates: start: 20100101, end: 20100509
  2. CELLCEPT [Suspect]
     Indication: GLOMERULONEPHRITIS
     Dosage: 1G PER DAY
     Route: 048
     Dates: start: 20100101, end: 20100506
  3. ARANESP [Suspect]
     Dosage: 80MCG SEE DOSAGE TEXT
     Route: 058
     Dates: start: 20100101, end: 20100509
  4. NEBILOX [Concomitant]
     Dosage: 2.5MG PER DAY
     Route: 065
  5. PREVISCAN [Concomitant]
     Dosage: 10MG PER DAY
     Route: 065
     Dates: end: 20100509
  6. STABLON [Concomitant]
     Dosage: 25MG PER DAY
     Route: 065
  7. AMLODIPINE [Concomitant]
     Dosage: 5MG PER DAY
     Route: 065
  8. DAFALGAN [Concomitant]
     Route: 065
  9. PREDNISONE [Concomitant]
     Dosage: 5MG PER DAY
     Route: 065
  10. APROVEL [Concomitant]
     Dosage: 300MG PER DAY
     Route: 065

REACTIONS (4)
  - AGRANULOCYTOSIS [None]
  - CONFUSIONAL STATE [None]
  - PYREXIA [None]
  - URINARY TRACT INFECTION [None]
